FAERS Safety Report 10009000 (Version 1)
Quarter: 2014Q1

REPORT INFORMATION
  Report Type: Spontaneous
  Country: US (occurrence: US)
  Receive Date: 20140313
  Receipt Date: 20140313
  Transmission Date: 20141002
  Serious: No
  Sender: FDA-Public Use
  Company Number: US-INCYTE CORPORATION-2012IN001113

PATIENT
  Age: 74 Year
  Sex: Female
  Weight: 63.04 kg

DRUGS (17)
  1. JAKAFI [Suspect]
     Indication: MYELOFIBROSIS
     Dosage: 20 MG, BID
     Route: 048
     Dates: start: 20120401
  2. JAKAFI [Suspect]
     Indication: NEOPLASM MALIGNANT
  3. COREG [Concomitant]
     Indication: CARDIAC FAILURE CONGESTIVE
     Dosage: 3.125 MG, BID
     Route: 048
  4. ASPIRIN [Concomitant]
     Indication: PROPHYLAXIS
     Dosage: 81 MG, QD
     Route: 048
     Dates: end: 20120607
  5. ZOCOR [Concomitant]
     Indication: BLOOD CHOLESTEROL INCREASED
     Dosage: 20 MG, QHS
     Route: 048
     Dates: end: 20120607
  6. ZOCOR [Concomitant]
     Indication: BLOOD TRIGLYCERIDES INCREASED
  7. LOVAZA [Concomitant]
     Indication: BLOOD TRIGLYCERIDES INCREASED
     Dosage: 1 G, QD
     Route: 048
     Dates: end: 20120607
  8. LETROZOLE [Concomitant]
     Indication: BREAST CANCER
     Dosage: 2.5 MG, QD
     Route: 048
     Dates: end: 20120607
  9. FOLIC ACID [Concomitant]
     Indication: FOLATE DEFICIENCY
     Dosage: 400 MG, QD
     Route: 048
     Dates: end: 20120607
  10. VITAMIN B COMPLEX [Concomitant]
     Indication: VITAMIN SUPPLEMENTATION
     Dosage: 1 DF, QD
     Route: 048
     Dates: end: 20120607
  11. CORTEF [Concomitant]
     Indication: ENDOCRINE DISORDER
     Dosage: 10 MG, QAM
     Route: 048
     Dates: end: 20120608
  12. AMBIEN [Concomitant]
     Indication: INSOMNIA
     Dosage: 10 MG, QHS, PRN
     Route: 048
     Dates: end: 20120607
  13. VITAMIN D [Concomitant]
     Indication: VITAMIN SUPPLEMENTATION
     Dosage: 1000 UT, QD
     Route: 048
     Dates: end: 20120607
  14. GARLIC [Concomitant]
     Indication: SUPPLEMENTATION THERAPY
     Dosage: 500 MG, QD
     Route: 048
     Dates: end: 20120607
  15. TYLENOL EXTRA STRENGTH [Concomitant]
     Indication: PAIN
     Dosage: 500 MG, Q4H PRN
     Route: 048
     Dates: end: 20120607
  16. TYLENOL EXTRA STRENGTH [Concomitant]
     Indication: BODY TEMPERATURE INCREASED
  17. OSCAL [Concomitant]
     Indication: HYPOCALCAEMIA
     Dosage: 500 MG, BID
     Route: 048
     Dates: end: 20120607

REACTIONS (3)
  - Syncope [Recovered/Resolved]
  - Pyrexia [Recovered/Resolved]
  - Chills [Unknown]
